FAERS Safety Report 14920667 (Version 2)
Quarter: 2019Q1

REPORT INFORMATION
  Report Type: Spontaneous
  Country: CA (occurrence: CA)
  Receive Date: 20180521
  Receipt Date: 20190111
  Transmission Date: 20190417
  Serious: Yes (Other)
  Sender: FDA-Public Use
  Company Number: CA-OTSUKA-2018_011956

PATIENT
  Sex: Male
  Weight: 90 kg

DRUGS (4)
  1. TRANYLCYPROMINE SULFATE. [Suspect]
     Active Substance: TRANYLCYPROMINE SULFATE
     Indication: PRODUCT USED FOR UNKNOWN INDICATION
     Dosage: 60 MG, QD (1 EVERY 1 DAY(S))
     Route: 048
     Dates: start: 2012
  2. FLAGYL [Concomitant]
     Active Substance: METRONIDAZOLE\METRONIDAZOLE HYDROCHLORIDE
     Indication: PRODUCT USED FOR UNKNOWN INDICATION
     Dosage: 500 MG, BID (2 EVERY 1 DAY(S))
     Route: 048
     Dates: start: 201704
  3. ARIPIPRAZOLE. [Suspect]
     Active Substance: ARIPIPRAZOLE
     Indication: PRODUCT USED FOR UNKNOWN INDICATION
     Dosage: 10 MG, QD (1 EVERY 1 DAY(S))
     Route: 048
     Dates: start: 2016
  4. VYVANSE [Suspect]
     Active Substance: LISDEXAMFETAMINE DIMESYLATE
     Indication: PRODUCT USED FOR UNKNOWN INDICATION
     Dosage: 10 MG, QD  (1 EVERY 1 DAY(S))
     Route: 048
     Dates: start: 2016

REACTIONS (8)
  - Psoriasis [Unknown]
  - Arthralgia [Unknown]
  - Abscess drainage [Unknown]
  - Anal haemorrhage [Unknown]
  - Proctalgia [Unknown]
  - Abscess [Unknown]
  - Anal fistula [Unknown]
  - Crohn^s disease [Unknown]

NARRATIVE: CASE EVENT DATE: 201703
